FAERS Safety Report 6470900-X (Version None)
Quarter: 2009Q4

REPORT INFORMATION
  Report Type: 
  Country: None (occurrence: None)
  Receive Date: 20091203
  Receipt Date: 20080119
  Transmission Date: 20100525
  Serious: Yes (Hospitalization)
  Sender: FDA-Public Use
  Company Number: US-ELI_LILLY_AND_COMPANY-US200801004532

PATIENT
  Sex: Male
  Weight: 95.238 kg

DRUGS (9)
  1. EXENATIDE [Suspect]
     Indication: TYPE 2 DIABETES MELLITUS
     Dosage: 5 UG, 2/D
     Route: 058
     Dates: start: 20060201, end: 20060301
  2. EXENATIDE [Suspect]
     Dosage: 10 UG, 2/D
     Route: 058
     Dates: start: 20060301, end: 20070518
  3. EXENATIDE [Suspect]
     Dosage: 10 UG, 2/D
     Route: 058
     Dates: start: 20070501
  4. VESICARE /01735902/ [Concomitant]
     Indication: BLADDER DISORDER
     Dosage: 5 MG, DAILY (1/D)
     Route: 048
     Dates: start: 20010101
  5. ALLOPURINOL [Concomitant]
     Indication: GOUT
     Dosage: 300 MG, DAILY (1/D)
     Route: 048
     Dates: start: 19780101
  6. FOLTX /01079901/ [Concomitant]
     Indication: HYPERHOMOCYSTEINAEMIA
     Dosage: UNK, DAILY (1/D)
     Route: 048
     Dates: start: 20050101
  7. METOPROLOL /00376902/ [Concomitant]
     Indication: HYPERTENSION
     Dosage: 50 MG, 2/D
     Route: 048
     Dates: start: 20040101
  8. AMLODIPINE [Concomitant]
     Indication: HYPERTENSION
     Dosage: 5 MG, 2/D
     Route: 048
  9. CRESTOR /01588602/ [Concomitant]
     Indication: BLOOD CHOLESTEROL
     Dosage: 5 MG, DAILY (1/D)
     Route: 048

REACTIONS (5)
  - BLADDER CANCER RECURRENT [None]
  - BLOOD GLUCOSE INCREASED [None]
  - INJECTION SITE HAEMORRHAGE [None]
  - INJECTION SITE PAIN [None]
  - WHITE BLOOD CELL COUNT DECREASED [None]
